APPROVED DRUG PRODUCT: GLIPIZIDE AND METFORMIN HYDROCHLORIDE
Active Ingredient: GLIPIZIDE; METFORMIN HYDROCHLORIDE
Strength: 5MG;500MG
Dosage Form/Route: TABLET;ORAL
Application: A078083 | Product #003
Applicant: NOVITIUM PHARMA LLC
Approved: Apr 12, 2007 | RLD: No | RS: No | Type: DISCN